FAERS Safety Report 10305892 (Version 2)
Quarter: 2014Q3

REPORT INFORMATION
  Report Type: Report from Study
  Country: US (occurrence: US)
  Receive Date: 20140715
  Receipt Date: 20140826
  Transmission Date: 20150326
  Serious: Yes (Hospitalization)
  Sender: FDA-Public Use
  Company Number: PHEH2014US013949

PATIENT
  Sex: Male
  Weight: 81.63 kg

DRUGS (13)
  1. ROPINIROLE. [Concomitant]
     Active Substance: ROPINIROLE
  2. CALCIUM [Concomitant]
     Active Substance: CALCIUM
  3. VITAMIN E [Concomitant]
     Active Substance: .ALPHA.-TOCOPHEROL
  4. GILENYA [Suspect]
     Active Substance: FINGOLIMOD HYDROCHLORIDE
     Indication: MULTIPLE SCLEROSIS
     Dosage: 0.5 MG, QD
     Route: 048
     Dates: start: 20120413
  5. TEMAZEPAM. [Concomitant]
     Active Substance: TEMAZEPAM
  6. TYLENOL [Concomitant]
     Active Substance: ACETAMINOPHEN
  7. DONEPEZIL [Concomitant]
     Active Substance: DONEPEZIL
  8. XANAX [Concomitant]
     Active Substance: ALPRAZOLAM
  9. GABAPENTIN. [Concomitant]
     Active Substance: GABAPENTIN
  10. AMINOPYRIDINE [Concomitant]
     Active Substance: DALFAMPRIDINE
  11. VITAMIN B1 [Concomitant]
     Active Substance: THIAMINE HYDROCHLORIDE
  12. B12//CYANOCOBALAMIN-TANNIN COMPLEX [Concomitant]
  13. TIZANIDINE [Concomitant]
     Active Substance: TIZANIDINE

REACTIONS (2)
  - Balance disorder [Unknown]
  - Malaise [Unknown]
